FAERS Safety Report 11911703 (Version 1)
Quarter: 2016Q1

REPORT INFORMATION
  Report Type: Other
  Country: US (occurrence: US)
  Receive Date: 20160112
  Receipt Date: 20160112
  Transmission Date: 20160526
  Serious: Yes (Other)
  Sender: FDA-Public Use
  Company Number: US-PURDUE PHARMA-CAN-2016-0006380

PATIENT
  Age: 15 Year
  Sex: Female

DRUGS (1)
  1. NON-PMN METHYLPHENIDATE HCL [Suspect]
     Active Substance: METHYLPHENIDATE HYDROCHLORIDE
     Indication: ATTENTION DEFICIT/HYPERACTIVITY DISORDER
     Dosage: 27 MG, DAILY
     Route: 065

REACTIONS (3)
  - Muscle tightness [Recovered/Resolved]
  - Dystonia [Recovered/Resolved]
  - Pain [Recovered/Resolved]
